FAERS Safety Report 8062377-8 (Version None)
Quarter: 2012Q1

REPORT INFORMATION
  Report Type: 
  Country: None (occurrence: None)
  Receive Date: 20120123
  Receipt Date: 20120116
  Transmission Date: 20120608
  Serious: Yes (Other)
  Sender: FDA-Public Use
  Company Number: US-JNJFOC-20120107183

PATIENT

DRUGS (3)
  1. DOXORUBICIN HCL [Suspect]
     Indication: NEOPLASM MALIGNANT
     Dosage: DAY 1
     Route: 042
  2. GEMCITABINE [Suspect]
     Indication: NEOPLASM MALIGNANT
     Dosage: DAYS 1 AND 8
     Route: 042
  3. BORTEZOMIB [Suspect]
     Indication: NEOPLASM MALIGNANT
     Dosage: DAYS 1, 4, 8 AND 11
     Route: 042

REACTIONS (1)
  - SKIN LESION [None]
